FAERS Safety Report 23483278 (Version 2)
Quarter: 2024Q1

REPORT INFORMATION
  Report Type: Spontaneous
  Country: JP (occurrence: JP)
  Receive Date: 20240205
  Receipt Date: 20240306
  Transmission Date: 20240410
  Serious: Yes (Other)
  Sender: FDA-Public Use
  Company Number: JP-DSPHARMA-2024SMP000911

PATIENT

DRUGS (1)
  1. LATUDA [Suspect]
     Active Substance: LURASIDONE HYDROCHLORIDE
     Indication: Schizophrenia
     Dosage: 40 MG, QD
     Route: 048

REACTIONS (1)
  - Arrhythmia [Unknown]
